FAERS Safety Report 12370001 (Version 1)
Quarter: 2016Q2

REPORT INFORMATION
  Report Type: Spontaneous
  Country: TW (occurrence: TW)
  Receive Date: 20160516
  Receipt Date: 20160516
  Transmission Date: 20160815
  Serious: Yes (Hospitalization)
  Sender: FDA-Public Use
  Company Number: TW-MALLINCKRODT-T201601666

PATIENT
  Age: 76 Year
  Sex: Female

DRUGS (2)
  1. HEPARIN [Concomitant]
     Active Substance: HEPARIN SODIUM
     Indication: COAGULATION TIME
     Route: 042
  2. OPTIRAY [Suspect]
     Active Substance: IOVERSOL
     Indication: PERCUTANEOUS CORONARY INTERVENTION
     Dosage: 150 ML, SINGLE

REACTIONS (1)
  - Toxic encephalopathy [Recovered/Resolved]
